FAERS Safety Report 8135925-7 (Version None)
Quarter: 2012Q1

REPORT INFORMATION
  Report Type: 
  Country: None (occurrence: None)
  Receive Date: 20120214
  Receipt Date: 20120207
  Transmission Date: 20120608
  Serious: Yes (Other)
  Sender: FDA-Public Use
  Company Number: FR-PFIZER INC-2012032881

PATIENT
  Sex: Female

DRUGS (2)
  1. RITUXIMAB [Concomitant]
     Indication: MANTLE CELL LYMPHOMA RECURRENT
  2. TORISEL [Suspect]
     Indication: MANTLE CELL LYMPHOMA RECURRENT
     Dosage: 25 MG, UNK

REACTIONS (2)
  - PYELONEPHRITIS [None]
  - RENAL FAILURE ACUTE [None]
